FAERS Safety Report 24446001 (Version 1)
Quarter: 2024Q4

REPORT INFORMATION
  Report Type: Spontaneous
  Country: CA (occurrence: CA)
  Receive Date: 20241016
  Receipt Date: 20241016
  Transmission Date: 20250115
  Serious: Yes (Other)
  Sender: HILL DERMACEUTICALS, INC.
  Company Number: CA-Hill Dermaceuticals, Inc.-2163151

PATIENT
  Age: 79 Year
  Sex: Female
  Weight: 73 kg

DRUGS (2)
  1. FLUOROURACIL [Suspect]
     Active Substance: FLUOROURACIL
     Indication: Skin lesion
  2. TYLENOL [Concomitant]
     Active Substance: ACETAMINOPHEN

REACTIONS (10)
  - Appetite disorder [Not Recovered/Not Resolved]
  - Vertigo [Not Recovered/Not Resolved]
  - Speech disorder [Not Recovered/Not Resolved]
  - Skin weeping [Not Recovered/Not Resolved]
  - Skin irritation [Not Recovered/Not Resolved]
  - Muscular weakness [Not Recovered/Not Resolved]
  - Hypertension [Not Recovered/Not Resolved]
  - Headache [Not Recovered/Not Resolved]
  - Ear congestion [Not Recovered/Not Resolved]
  - Dizziness [Not Recovered/Not Resolved]
